FAERS Safety Report 8781989 (Version 2)
Quarter: 2012Q4

REPORT INFORMATION
  Report Type: 
  Country: CA (occurrence: CA)
  Receive Date: 20120913
  Receipt Date: 20120921
  Transmission Date: 20130627
  Serious: Yes (Other)
  Sender: FDA-Public Use
  Company Number: CA-JNJFOC-20120903129

PATIENT
  Age: 66 Year
  Sex: Female
  Weight: 75.75 kg

DRUGS (8)
  1. NUCYNTA CR [Suspect]
     Indication: NEURALGIA
     Dosage: twice a day
     Route: 048
     Dates: start: 20111006, end: 20120831
  2. COVERSYL [Concomitant]
     Dosage: once daily
  3. PRAVACHOL [Concomitant]
     Indication: BLOOD CHOLESTEROL
  4. SYMBICORT [Concomitant]
     Dosage: bid, prn
  5. DILTIAZEM [Concomitant]
     Dosage: once daily
  6. BISOPROLOL [Concomitant]
     Dosage: once daily
  7. UNKNOWN MEDICATION [Concomitant]
     Dosage: prn
  8. DOMPERIDONE [Concomitant]
     Dosage: bid

REACTIONS (3)
  - Creatinine renal clearance decreased [Recovering/Resolving]
  - Renal impairment [Recovered/Resolved]
  - Treatment noncompliance [Unknown]
